FAERS Safety Report 18359960 (Version 1)
Quarter: 2020Q4

REPORT INFORMATION
  Report Type: Spontaneous
  Country: US (occurrence: US)
  Receive Date: 20201008
  Receipt Date: 20201008
  Transmission Date: 20210114
  Serious: Yes (Hospitalization, Other)
  Sender: FDA-Public Use
  Company Number: US-PFIZER INC-2020385095

PATIENT
  Age: 62 Year
  Sex: Female
  Weight: 70 kg

DRUGS (1)
  1. HEPARIN SODIUM. [Suspect]
     Active Substance: HEPARIN SODIUM
     Indication: THROMBOSIS PROPHYLAXIS
     Dosage: 5000 IU, 3X/DAY (Q8H EVERY 8 HOUR)
     Route: 058

REACTIONS (13)
  - Pneumonia [Unknown]
  - Respiratory distress [Unknown]
  - Pulmonary embolism [Unknown]
  - Atrial fibrillation [Unknown]
  - Embolic stroke [Unknown]
  - Acute respiratory failure [Unknown]
  - Pericardial effusion [Unknown]
  - Mobility decreased [Unknown]
  - Myocardial infarction [Unknown]
  - Secretion discharge [Unknown]
  - Haemorrhage [Unknown]
  - Chest pain [Recovering/Resolving]
  - Coronary artery disease [Unknown]
